FAERS Safety Report 25445278 (Version 1)
Quarter: 2025Q2

REPORT INFORMATION
  Report Type: Spontaneous
  Country: FR (occurrence: FR)
  Receive Date: 20250617
  Receipt Date: 20250617
  Transmission Date: 20250717
  Serious: Yes (Hospitalization)
  Sender: ACCORD
  Company Number: FR-Accord-489830

PATIENT
  Age: 42 Year
  Sex: Female

DRUGS (25)
  1. TACROLIMUS [Suspect]
     Active Substance: TACROLIMUS
     Indication: Immunosuppressant drug therapy
     Dates: start: 20210415
  2. AMPHOTERICIN B [Suspect]
     Active Substance: AMPHOTERICIN B
     Indication: Visceral leishmaniasis
     Dates: start: 20210415
  3. MEGLUMINE ANTIMONIATE [Suspect]
     Active Substance: MEGLUMINE ANTIMONIATE
     Indication: Visceral leishmaniasis
     Route: 042
  4. PREDNISONE [Concomitant]
     Active Substance: PREDNISONE
     Indication: Immunosuppressant drug therapy
  5. PAROMOMYCIN [Concomitant]
     Active Substance: PAROMOMYCIN
     Indication: Prophylaxis
     Route: 030
  6. MYCOPHENOLATE MOFETIL [Concomitant]
     Active Substance: MYCOPHENOLATE MOFETIL
     Indication: Immunosuppressant drug therapy
  7. MEGLUMINE ANTIMONIATE [Suspect]
     Active Substance: MEGLUMINE ANTIMONIATE
     Indication: Visceral leishmaniasis
     Route: 042
  8. TACROLIMUS [Suspect]
     Active Substance: TACROLIMUS
     Indication: Immunosuppressant drug therapy
     Dates: start: 20220818
  9. TACROLIMUS [Suspect]
     Active Substance: TACROLIMUS
     Indication: Immunosuppressant drug therapy
     Dates: start: 20210904
  10. TACROLIMUS [Suspect]
     Active Substance: TACROLIMUS
     Indication: Immunosuppressant drug therapy
     Dates: start: 20211022
  11. TACROLIMUS [Suspect]
     Active Substance: TACROLIMUS
     Indication: Immunosuppressant drug therapy
     Dates: start: 20211109
  12. TACROLIMUS [Suspect]
     Active Substance: TACROLIMUS
     Indication: Immunosuppressant drug therapy
     Dates: start: 20210818
  13. TACROLIMUS [Suspect]
     Active Substance: TACROLIMUS
     Indication: Immunosuppressant drug therapy
     Dates: start: 20220913
  14. TACROLIMUS [Suspect]
     Active Substance: TACROLIMUS
     Indication: Immunosuppressant drug therapy
     Dates: start: 20230601
  15. TACROLIMUS [Suspect]
     Active Substance: TACROLIMUS
     Indication: Immunosuppressant drug therapy
     Dates: start: 20231003
  16. TACROLIMUS [Suspect]
     Active Substance: TACROLIMUS
     Indication: Immunosuppressant drug therapy
     Dates: start: 20231202
  17. TACROLIMUS [Suspect]
     Active Substance: TACROLIMUS
     Indication: Immunosuppressant drug therapy
     Dosage: 3 JAN 9 MG; 9 JAN 10 MG; 16 JAN 11 MG; 23 JAN 12 MG; 30 JAN 13 MG; 7 FEB 11 MG;
     Dates: start: 20240103
  18. TACROLIMUS [Suspect]
     Active Substance: TACROLIMUS
     Indication: Immunosuppressant drug therapy
     Dates: start: 20240330
  19. AMPHOTERICIN B [Suspect]
     Active Substance: AMPHOTERICIN B
     Indication: Visceral leishmaniasis
     Dates: start: 20210825
  20. AMPHOTERICIN B [Suspect]
     Active Substance: AMPHOTERICIN B
     Indication: Visceral leishmaniasis
     Dates: start: 20210904
  21. AMPHOTERICIN B [Suspect]
     Active Substance: AMPHOTERICIN B
     Indication: Visceral leishmaniasis
     Dates: start: 20211022
  22. AMPHOTERICIN B [Suspect]
     Active Substance: AMPHOTERICIN B
     Indication: Visceral leishmaniasis
     Dates: start: 20220818
  23. AMPHOTERICIN B [Suspect]
     Active Substance: AMPHOTERICIN B
     Indication: Visceral leishmaniasis
     Dates: start: 20230601
  24. AMPHOTERICIN B [Suspect]
     Active Substance: AMPHOTERICIN B
     Indication: Visceral leishmaniasis
     Dates: start: 20231202
  25. AMPHOTERICIN B [Suspect]
     Active Substance: AMPHOTERICIN B
     Indication: Visceral leishmaniasis
     Dates: start: 20240330

REACTIONS (1)
  - Renal vessel disorder [Unknown]
